FAERS Safety Report 6770827 (Version 2)
Quarter: 2014Q4

REPORT INFORMATION
  Report Type: Spontaneous
  Country: US (occurrence: US)
  Receive Date: 20080925
  Receipt Date: 20141110
  Transmission Date: 20150529
  Serious: No
  Sender: FDA-Public Use
  Company Number: US-BAYER-200827201NA

PATIENT
  Age: 44 Year
  Sex: Female

DRUGS (1)
  1. CLIMARA [Suspect]
     Active Substance: ESTRADIOL
     Indication: MENOPAUSAL SYMPTOMS
     Dosage: 0.025 MG, OW
     Route: 062
     Dates: start: 2002

REACTIONS (6)
  - Night sweats [None]
  - Product quality issue [None]
  - Product adhesion issue [None]
  - Product use issue [None]
  - Migraine [Unknown]
  - Headache [None]

NARRATIVE: CASE EVENT DATE: 201410
